FAERS Safety Report 7076241-4 (Version None)
Quarter: 2010Q4

REPORT INFORMATION
  Report Type: 
  Country: None (occurrence: None)
  Receive Date: 20101101
  Receipt Date: 20101019
  Transmission Date: 20110411
  Serious: Yes (Other)
  Sender: FDA-Public Use
  Company Number: BR-US-EMD SERONO, INC.-7023555

PATIENT
  Sex: Female

DRUGS (4)
  1. REBIF [Suspect]
     Indication: RELAPSING-REMITTING MULTIPLE SCLEROSIS
     Route: 058
     Dates: start: 20030101
  2. ACETAMINOPHEN [Concomitant]
  3. STRUGERON [CINNARIZINE] [Concomitant]
  4. MANTIDAN [Concomitant]

REACTIONS (4)
  - MONOPLEGIA [None]
  - TREATMENT NONCOMPLIANCE [None]
  - TYMPANIC MEMBRANE PERFORATION [None]
  - URINARY INCONTINENCE [None]
